FAERS Safety Report 4369716-X (Version None)
Quarter: 2004Q2

REPORT INFORMATION
  Report Type: 
  Country: None (occurrence: None)
  Receive Date: 20040528
  Receipt Date: 20040520
  Transmission Date: 20050107
  Serious: Yes (Death, Hospitalization)
  Sender: FDA-Public Use
  Company Number: HQWYE059620MAY04

PATIENT
  Age: 52 Year
  Sex: Female

DRUGS (15)
  1. LEUCOVORIN CALCIUM [Suspect]
     Indication: COLORECTAL CANCER
     Dosage: 326 MG 2 TIMES PER 1 CYCLE, INTRAVENOUS
     Route: 042
     Dates: start: 20031201, end: 20031202
  2. LEUCOVORIN CALCIUM [Suspect]
     Indication: COLORECTAL CANCER
     Dosage: 326 MG 2 TIMES PER 1 CYCLE, INTRAVENOUS
     Route: 042
     Dates: start: 20031111
  3. CETUXIMAB (CETUXIMAB) [Suspect]
     Indication: COLORECTAL CANCER
     Dosage: SEE IMAGE
     Dates: start: 20031111, end: 20031111
  4. CETUXIMAB (CETUXIMAB) [Suspect]
     Indication: COLORECTAL CANCER
     Dosage: SEE IMAGE
     Dates: start: 20031121, end: 20031121
  5. CETUXIMAB (CETUXIMAB) [Suspect]
     Indication: COLORECTAL CANCER
     Dosage: SEE IMAGE
     Dates: start: 20031201, end: 20031202
  6. WARFARIN SODIUM [Concomitant]
  7. LEVOFLOXACIN [Concomitant]
  8. FENTANYL CITRATE [Concomitant]
  9. HYDROCODONE (HYDROCODONE) [Concomitant]
  10. LORAZEPAM [Concomitant]
  11. POTASSIUM CHLORIDE [Concomitant]
  12. AVINZA [Concomitant]
  13. FLUOROURACIL [Suspect]
     Indication: COLORECTAL CANCER
     Dosage: SEE IMAGE
     Dates: start: 20031201, end: 20031202
  14. OXALIPLATIN [Suspect]
     Indication: COLORECTAL CANCER
     Dosage: SEE IMAGE
     Dates: start: 20031201, end: 20031202
  15. OXALIPLATIN [Suspect]
     Indication: COLORECTAL CANCER
     Dosage: SEE IMAGE
     Dates: start: 20031111

REACTIONS (3)
  - DISEASE PROGRESSION [None]
  - SEPSIS [None]
  - SMALL INTESTINAL OBSTRUCTION [None]
